FAERS Safety Report 5419119-1 (Version None)
Quarter: 2007Q3

REPORT INFORMATION
  Report Type: 
  Country: None (occurrence: None)
  Receive Date: 20070820
  Receipt Date: 20070815
  Transmission Date: 20080115
  Serious: Yes (Other)
  Sender: FDA-Public Use
  Company Number: US-BAYER-200711461BCC

PATIENT
  Sex: Male
  Weight: 138 kg

DRUGS (2)
  1. ALEVE [Suspect]
     Indication: CARPAL TUNNEL SYNDROME
     Dosage: UNIT DOSE: 220 MG
     Route: 048
  2. SINGULAIR [Concomitant]

REACTIONS (2)
  - BLOOD GLUCOSE INCREASED [None]
  - CHEST PAIN [None]
